FAERS Safety Report 18384095 (Version 1)
Quarter: 2020Q4

REPORT INFORMATION
  Report Type: Spontaneous
  Country: US (occurrence: US)
  Receive Date: 20201014
  Receipt Date: 20201014
  Transmission Date: 20210114
  Serious: No
  Sender: FDA-Public Use
  Company Number: US-ASCEND THERAPEUTICS US, LLC-2092785

PATIENT
  Sex: Female

DRUGS (3)
  1. ESTROGEL [Suspect]
     Active Substance: ESTRADIOL
  2. SANDOZ-ESTRADIOL (ESTRADIOL) (TRANSDERMAL PATCH), UNKNOWN [Suspect]
     Active Substance: ESTRADIOL
     Route: 062
     Dates: start: 2019, end: 2019
  3. ESTROGEL [Suspect]
     Active Substance: ESTRADIOL
     Indication: PRODUCT USED FOR UNKNOWN INDICATION
     Route: 065

REACTIONS (4)
  - Vulvovaginal dryness [Not Recovered/Not Resolved]
  - Rash [Unknown]
  - Vulvovaginal discomfort [Not Recovered/Not Resolved]
  - Hot flush [Unknown]
